FAERS Safety Report 9129441 (Version 2)
Quarter: 2013Q2

REPORT INFORMATION
  Report Type: Spontaneous
  Country: CA (occurrence: CA)
  Receive Date: 20130228
  Receipt Date: 20130619
  Transmission Date: 20140414
  Serious: Yes (Death, Hospitalization)
  Sender: FDA-Public Use
  Company Number: CA-GLAXOSMITHKLINE-A1008588A

PATIENT
  Age: 47 Year
  Sex: Female

DRUGS (18)
  1. FLOLAN [Suspect]
     Indication: PULMONARY ARTERIAL HYPERTENSION
     Route: 042
     Dates: start: 20121111
  2. FLOLAN DILUENT [Suspect]
     Indication: PULMONARY ARTERIAL HYPERTENSION
     Route: 042
     Dates: start: 20121111
  3. FUROSEMIDE [Concomitant]
     Dosage: 80MG TWICE PER DAY
  4. OXAZEPAM [Concomitant]
     Dosage: 15MG AT NIGHT
  5. PANTOLOC [Concomitant]
     Dosage: 40MG PER DAY
  6. PAXIL [Concomitant]
     Dosage: 10MG PER DAY
  7. ALDACTONE [Concomitant]
     Dosage: 10MG TWICE PER DAY
  8. ASPIRIN [Concomitant]
     Dosage: 81MG PER DAY
  9. CALCIUM [Concomitant]
     Dosage: 500MG PER DAY
  10. VITAMIN D [Concomitant]
  11. DOMPERIDONE [Concomitant]
  12. ESTRADIOL [Concomitant]
  13. FLONASE [Concomitant]
  14. GRAVOL [Concomitant]
  15. ADCIRCA [Concomitant]
     Indication: PULMONARY ARTERIAL HYPERTENSION
     Dosage: 20MG PER DAY
     Route: 048
     Dates: start: 20130222
  16. PAROXETINE [Concomitant]
  17. OXYGEN [Concomitant]
  18. LORAZEPAM [Concomitant]

REACTIONS (5)
  - Dysgeusia [Not Recovered/Not Resolved]
  - Nausea [Not Recovered/Not Resolved]
  - Pulmonary arterial hypertension [Not Recovered/Not Resolved]
  - Pneumonia [Unknown]
  - Death [Fatal]
